FAERS Safety Report 5793388-0 (Version None)
Quarter: 2008Q2

REPORT INFORMATION
  Report Type: 
  Country: None (occurrence: None)
  Receive Date: 20080627
  Receipt Date: 20080616
  Transmission Date: 20081010
  Serious: Yes (Other)
  Sender: FDA-Public Use
  Company Number: US-ROCHE-571620

PATIENT
  Age: 56 Year
  Sex: Female

DRUGS (2)
  1. INTERFERON ALFA [Suspect]
     Route: 065
  2. INTERFERON ALFA [Suspect]
     Route: 065

REACTIONS (2)
  - CARDIOMYOPATHY [None]
  - OSTEONECROSIS [None]
